FAERS Safety Report 7917672-7 (Version None)
Quarter: 2011Q4

REPORT INFORMATION
  Report Type: 
  Country: None (occurrence: None)
  Receive Date: 20111116
  Receipt Date: 20111107
  Transmission Date: 20120403
  Serious: Yes (Death, Hospitalization, Other)
  Sender: FDA-Public Use
  Company Number: US-BAXTER-2011BH032835

PATIENT
  Sex: Male

DRUGS (1)
  1. DIANEAL [Suspect]
     Indication: PERITONEAL DIALYSIS
     Route: 033
     Dates: end: 20111011

REACTIONS (6)
  - DEATH [None]
  - MENTAL STATUS CHANGES [None]
  - DECUBITUS ULCER [None]
  - SEPSIS [None]
  - RESPIRATORY FAILURE [None]
  - WEIGHT DECREASED [None]
